FAERS Safety Report 4301632-1 (Version None)
Quarter: 2004Q1

REPORT INFORMATION
  Report Type: 
  Country: None (occurrence: None)
  Receive Date: 20040219
  Receipt Date: 20040203
  Transmission Date: 20041129
  Serious: Yes (Death)
  Sender: FDA-Public Use
  Company Number: 177904

PATIENT
  Age: 56 Year
  Sex: Male

DRUGS (12)
  1. AVONEX [Suspect]
     Indication: MULTIPLE SCLEROSIS
     Dosage: 30 MCG QW IM
     Route: 030
     Dates: start: 20010228, end: 20030627
  2. ROBITUSSIN [Concomitant]
  3. DOCUSATE [Concomitant]
  4. VALPROATE [Concomitant]
  5. PAXIL [Concomitant]
  6. BACLOFEN [Concomitant]
  7. ALBUTEROL [Concomitant]
  8. VITAMIN C [Concomitant]
  9. ATENOLOL [Concomitant]
  10. NEURONTIN [Concomitant]
  11. DANTRIUM [Concomitant]
  12. HYDROCHLOROTHIAZIDE [Concomitant]

REACTIONS (2)
  - SEPTIC SHOCK [None]
  - UROSEPSIS [None]
